FAERS Safety Report 6516507-7 (Version None)
Quarter: 2009Q4

REPORT INFORMATION
  Report Type: 
  Country: None (occurrence: None)
  Receive Date: 20091223
  Receipt Date: 20091217
  Transmission Date: 20100525
  Serious: Yes (Disabling, Other)
  Sender: FDA-Public Use
  Company Number: CO-ELI_LILLY_AND_COMPANY-CO200907005345

PATIENT
  Age: 59 Year
  Sex: Female

DRUGS (12)
  1. BYETTA [Suspect]
     Indication: TYPE 2 DIABETES MELLITUS
     Dosage: 5 UG, 2/D
     Route: 058
     Dates: start: 20090212, end: 20090219
  2. BYETTA [Suspect]
     Dosage: 5 UG, 2/D
     Route: 058
     Dates: start: 20090721, end: 20090101
  3. BYETTA [Suspect]
     Dosage: 10 UG, 2/D
     Route: 065
     Dates: start: 20090101
  4. METFORMIN HCL [Concomitant]
     Route: 048
  5. GLUCOX [Concomitant]
     Route: 048
  6. CALCITRIOL [Concomitant]
     Indication: SUPPLEMENTATION THERAPY
  7. MONOPRIL [Concomitant]
  8. VERAPAMIL [Concomitant]
  9. LANSOPRAZOLE [Concomitant]
  10. CLONIDINE [Concomitant]
  11. ATORVASTATIN CALCIUM [Concomitant]
  12. CLOPIDOGREL [Concomitant]

REACTIONS (9)
  - ASTHENIA [None]
  - BLOOD GLUCOSE INCREASED [None]
  - BLOOD PRESSURE INCREASED [None]
  - CEREBRAL HAEMORRHAGE [None]
  - COLD SWEAT [None]
  - DISCOMFORT [None]
  - DIZZINESS [None]
  - PARAESTHESIA [None]
  - SPEECH DISORDER [None]
